FAERS Safety Report 16483827 (Version 1)
Quarter: 2019Q2

REPORT INFORMATION
  Report Type: Spontaneous
  Country: US (occurrence: US)
  Receive Date: 20190516
  Receipt Date: 20190516
  Transmission Date: 20190711
  Serious: Yes (Hospitalization)
  Sender: FDA-Public Use
  Company Number: None

PATIENT
  Sex: Female

DRUGS (5)
  1. BENLYSTA [Suspect]
     Active Substance: BELIMUMAB
     Indication: PRODUCT USED FOR UNKNOWN INDICATION
     Dates: start: 20181222
  2. VITAMIN D CAP [Concomitant]
  3. PANTOFRAZOLE TAB [Concomitant]
  4. OXYCOD/APAP TAB [Concomitant]
  5. WIXELA INJUB AER [Concomitant]

REACTIONS (1)
  - Ankle operation [None]
